FAERS Safety Report 8605240-3 (Version None)
Quarter: 2012Q3

REPORT INFORMATION
  Report Type: 
  Country: None (occurrence: None)
  Receive Date: 20120820
  Receipt Date: 20120809
  Transmission Date: 20120928
  Serious: Yes (Other)
  Sender: FDA-Public Use
  Company Number: CN-ASTRAZENECA-2012SE58150

PATIENT
  Age: 17397 Day
  Sex: Female
  Weight: 52 kg

DRUGS (1)
  1. FELODIPINE [Suspect]
     Indication: HYPERTENSION
     Route: 048
     Dates: start: 20091028, end: 20091028

REACTIONS (3)
  - PHARYNGEAL OEDEMA [None]
  - SPEECH DISORDER [None]
  - DYSPNOEA [None]
